FAERS Safety Report 7074080-1 (Version None)
Quarter: 2010Q4

REPORT INFORMATION
  Report Type: 
  Country: None (occurrence: None)
  Receive Date: 20101029
  Receipt Date: 20101017
  Transmission Date: 20110411
  Serious: Yes (Other)
  Sender: FDA-Public Use
  Company Number: US-PFIZER INC-2010131923

PATIENT
  Sex: Male

DRUGS (3)
  1. VIAGRA [Suspect]
  2. LEVITRA [Suspect]
  3. CIALIS [Suspect]

REACTIONS (2)
  - BLINDNESS UNILATERAL [None]
  - OPTIC ISCHAEMIC NEUROPATHY [None]
